FAERS Safety Report 8002634-4 (Version None)
Quarter: 2011Q4

REPORT INFORMATION
  Report Type: 
  Country: None (occurrence: None)
  Receive Date: 20111222
  Receipt Date: 20111215
  Transmission Date: 20120403
  Serious: Yes (Hospitalization)
  Sender: FDA-Public Use
  Company Number: FR-VIIV HEALTHCARE LIMITED-B0769469A

PATIENT
  Sex: Male

DRUGS (9)
  1. MARAVIROC [Suspect]
     Indication: HIV INFECTION
     Dosage: 150MG TWICE PER DAY
     Route: 048
     Dates: start: 20110510
  2. ISENTRESS [Suspect]
     Indication: HIV INFECTION
     Dosage: 400MG TWICE PER DAY
     Route: 048
     Dates: start: 20100812
  3. NORVIR [Suspect]
     Indication: HIV INFECTION
     Dosage: 100MG PER DAY
     Route: 048
     Dates: start: 20051003
  4. PREZISTA [Suspect]
     Indication: HIV INFECTION
     Dosage: 400MG TWICE PER DAY
     Route: 048
     Dates: start: 20090901
  5. BECLOMETHASONE DIPROPIONATE + FORMOTEROL [Concomitant]
     Dosage: 2PUFF TWICE PER DAY
     Route: 055
  6. LANSOPRAZOLE [Concomitant]
     Dosage: 30MG PER DAY
     Route: 065
  7. PERINDOPRIL [Suspect]
     Indication: HYPERTENSION
     Dosage: 4MG PER DAY
     Route: 048
     Dates: end: 20110720
  8. FLUOXETINE [Concomitant]
     Dosage: 20MG PER DAY
     Route: 065
  9. UVEDOSE [Concomitant]
     Dosage: 1UNIT EVERY 3 MONTHS
     Route: 065

REACTIONS (1)
  - ISCHAEMIC STROKE [None]
